FAERS Safety Report 15272123 (Version 1)
Quarter: 2018Q3

REPORT INFORMATION
  Report Type: Spontaneous
  Country: US (occurrence: US)
  Receive Date: 20180813
  Receipt Date: 20180813
  Transmission Date: 20181010
  Serious: Yes (Other)
  Sender: FDA-Public Use
  Company Number: US-AMGEN-USASP2018103459

PATIENT
  Age: 74 Year
  Sex: Female
  Weight: 53.97 kg

DRUGS (1)
  1. NEULASTA [Suspect]
     Active Substance: PEGFILGRASTIM
     Indication: NEUTROPENIA
     Dosage: 6 MG, UNK
     Route: 065

REACTIONS (4)
  - Drug dose omission [Unknown]
  - Neutropenia [Recovered/Resolved]
  - Wrong technique in product usage process [Unknown]
  - Unintentional medical device removal [Unknown]

NARRATIVE: CASE EVENT DATE: 20180712
